FAERS Safety Report 12191040 (Version 1)
Quarter: 2016Q1

REPORT INFORMATION
  Report Type: Report from Study
  Country: GB (occurrence: GB)
  Receive Date: 20160318
  Receipt Date: 20160318
  Transmission Date: 20160526
  Serious: Yes (Hospitalization)
  Sender: FDA-Public Use
  Company Number: GB-ABBVIE-16K-167-1580556-00

PATIENT
  Sex: Female

DRUGS (2)
  1. HUMIRA [Suspect]
     Active Substance: ADALIMUMAB
     Indication: PSORIASIS
     Route: 058
  2. CICLOSPORIN [Concomitant]
     Active Substance: CYCLOSPORINE
     Indication: PSORIASIS

REACTIONS (5)
  - Exposure during pregnancy [Unknown]
  - Obstructed labour [Recovered/Resolved]
  - Caesarean section [Recovered/Resolved]
  - Normal newborn [Unknown]
  - Psoriasis [Unknown]

NARRATIVE: CASE EVENT DATE: 20150503
